FAERS Safety Report 8200027-8 (Version None)
Quarter: 2012Q1

REPORT INFORMATION
  Report Type: 
  Country: None (occurrence: None)
  Receive Date: 20120312
  Receipt Date: 20120307
  Transmission Date: 20120608
  Serious: No
  Sender: FDA-Public Use
  Company Number: US-PFIZER INC-2012061931

PATIENT
  Sex: Female
  Weight: 54.422 kg

DRUGS (1)
  1. FLECTOR [Suspect]
     Indication: MUSCULOSKELETAL PAIN
     Dosage: UNK
     Route: 062
     Dates: start: 20120305

REACTIONS (1)
  - MUSCULOSKELETAL PAIN [None]
